FAERS Safety Report 9255300 (Version 1)
Quarter: 2013Q1

REPORT INFORMATION
  Report Type: Spontaneous
  Country: US (occurrence: None)
  Receive Date: 20121203
  Receipt Date: 20121203
  Transmission Date: 20140127
  Serious: Yes (Hospitalization, Other)
  Sender: FDA-Public Use
  Company Number: 2012SPO29904

PATIENT
  Age: 23 Year
  Sex: Female
  Weight: 82.56 kg

DRUGS (2)
  1. NUVARING [Suspect]
     Indication: CONTRACEPTION
     Dosage: UNK
     Dates: start: 200901, end: 20090603
  2. SERTRALINE HYDROCHLORIDE [Concomitant]

REACTIONS (3)
  - Pulmonary embolism [None]
  - Female sterilisation [None]
  - Headache [None]
